FAERS Safety Report 8017070-4 (Version None)
Quarter: 2012Q1

REPORT INFORMATION
  Report Type: 
  Country: None (occurrence: None)
  Receive Date: 20120102
  Receipt Date: 20111229
  Transmission Date: 20120608
  Serious: Yes (Death, Hospitalization)
  Sender: FDA-Public Use
  Company Number: PHHY2011SV113536

PATIENT
  Age: 62 Year
  Sex: Male

DRUGS (1)
  1. FORADIL [Suspect]
     Indication: ASTHMA
     Dosage: 12 UG, Q8H

REACTIONS (3)
  - DEATH [None]
  - RESPIRATORY DISORDER [None]
  - PNEUMONIA [None]
